FAERS Safety Report 24712396 (Version 2)
Quarter: 2024Q4

REPORT INFORMATION
  Report Type: Spontaneous
  Country: US (occurrence: US)
  Receive Date: 20241209
  Receipt Date: 20241220
  Transmission Date: 20250115
  Serious: Yes (Hospitalization)
  Sender: TEVA
  Company Number: US-TEVA-VS-3272227

PATIENT
  Age: 39 Year
  Sex: Male

DRUGS (5)
  1. OXYBUTYNIN [Suspect]
     Active Substance: OXYBUTYNIN
     Indication: Cystitis interstitial
     Route: 065
  2. TROSPIUM CHLORIDE [Suspect]
     Active Substance: TROSPIUM CHLORIDE
     Indication: Cystitis interstitial
     Route: 065
  3. KETAMINE HYDROCHLORIDE [Suspect]
     Active Substance: KETAMINE HYDROCHLORIDE
     Indication: Product used for unknown indication
     Route: 065
  4. FESOTERODINE [Suspect]
     Active Substance: FESOTERODINE
     Indication: Cystitis interstitial
     Route: 065
  5. MIRABEGRON [Suspect]
     Active Substance: MIRABEGRON
     Indication: Cystitis interstitial
     Route: 065

REACTIONS (7)
  - Cystitis interstitial [Unknown]
  - Drug ineffective [Unknown]
  - Acute kidney injury [Unknown]
  - Haematuria [Unknown]
  - Pyuria [Unknown]
  - Hydronephrosis [Unknown]
  - Chronic kidney disease [Unknown]
